FAERS Safety Report 5682880-5 (Version None)
Quarter: 2008Q1

REPORT INFORMATION
  Report Type: 
  Country: None (occurrence: None)
  Receive Date: 20080325
  Receipt Date: 20080314
  Transmission Date: 20080703
  Serious: Yes (Other)
  Sender: FDA-Public Use
  Company Number: CHPA2008US04985

PATIENT
  Age: 19 Year
  Sex: Male

DRUGS (1)
  1. ACETYLSALICYLIC ACID (NCH)(ACETYLSALICYLIC ACID) UNKNOWN [Suspect]

REACTIONS (4)
  - CAROTID ARTERY STENOSIS [None]
  - DISEASE RECURRENCE [None]
  - INJURY [None]
  - VASCULAR PSEUDOANEURYSM [None]
